FAERS Safety Report 19086427 (Version 1)
Quarter: 2021Q2

REPORT INFORMATION
  Report Type: Spontaneous
  Country: US (occurrence: US)
  Receive Date: 20210401
  Receipt Date: 20210401
  Transmission Date: 20210717
  Serious: No
  Sender: FDA-Public Use
  Company Number: None

PATIENT
  Age: 62 Year
  Sex: Female
  Weight: 52.2 kg

DRUGS (18)
  1. MYCEL IMMUNE PLUS [Concomitant]
  2. PROCHLORPERAZINE. [Concomitant]
     Active Substance: PROCHLORPERAZINE
  3. TEMAZEPAM. [Concomitant]
     Active Substance: TEMAZEPAM
  4. ONDANSETRON [Concomitant]
     Active Substance: ONDANSETRON
  5. SULFASALAZINE. [Concomitant]
     Active Substance: SULFASALAZINE
  6. CALCIUM CARBONATE +D [Concomitant]
  7. CRESTOR [Concomitant]
     Active Substance: ROSUVASTATIN CALCIUM
  8. FISH OIL [Concomitant]
     Active Substance: FISH OIL
  9. MELOXICAM. [Concomitant]
     Active Substance: MELOXICAM
  10. MULTIVITAMIN [Concomitant]
     Active Substance: VITAMINS
  11. MAGNESIUM [Concomitant]
     Active Substance: MAGNESIUM
  12. PHOSPHATIDYLSERINE [Concomitant]
     Active Substance: PHOSPHATIDYL SERINE
  13. GABAPENTIN. [Concomitant]
     Active Substance: GABAPENTIN
  14. LEXAPRO [Concomitant]
     Active Substance: ESCITALOPRAM OXALATE
  15. TUKYSA [Concomitant]
     Active Substance: TUCATINIB
  16. CAPECITABINE. [Suspect]
     Active Substance: CAPECITABINE
     Indication: BREAST CANCER FEMALE
     Dosage: ?          OTHER FREQUENCY:BID 7ON/ 7 OFF;?
     Route: 048
     Dates: start: 20210114
  17. LOMOTIL [Concomitant]
     Active Substance: ATROPINE SULFATE\DIPHENOXYLATE HYDROCHLORIDE
  18. POTASSIUM CHLORIDE. [Concomitant]
     Active Substance: POTASSIUM CHLORIDE

REACTIONS (1)
  - Tremor [None]

NARRATIVE: CASE EVENT DATE: 20210401
